FAERS Safety Report 9470315 (Version 1)
Quarter: 2013Q3

REPORT INFORMATION
  Report Type: Spontaneous
  Country: US (occurrence: US)
  Receive Date: 20130822
  Receipt Date: 20130822
  Transmission Date: 20140515
  Serious: No
  Sender: FDA-Public Use
  Company Number: US-SANOFI-AVENTIS-2012SA074779

PATIENT
  Sex: Male

DRUGS (5)
  1. MULTAQ [Suspect]
     Indication: ATRIAL FIBRILLATION
     Dosage: ONE-HALF OF A 400 MG TABLET TWICE A DAY
     Route: 048
     Dates: start: 201204
  2. DABIGATRAN ETEXILATE [Interacting]
     Route: 065
     Dates: start: 2012
  3. DABIGATRAN ETEXILATE [Interacting]
     Route: 065
     Dates: start: 2012, end: 2012
  4. DABIGATRAN ETEXILATE [Interacting]
     Route: 065
     Dates: start: 2012
  5. LASIX [Concomitant]

REACTIONS (3)
  - Petechiae [Unknown]
  - Oedema peripheral [Recovering/Resolving]
  - Drug interaction [Unknown]
